FAERS Safety Report 15483607 (Version 1)
Quarter: 2018Q4

REPORT INFORMATION
  Report Type: Spontaneous
  Country: US (occurrence: US)
  Receive Date: 20181010
  Receipt Date: 20181010
  Transmission Date: 20190205
  Serious: Yes (Other)
  Sender: FDA-Public Use
  Company Number: US-BAXTER-2018BAX024850

PATIENT
  Age: 22 Year
  Sex: Male

DRUGS (3)
  1. EPINEPHRINE. [Suspect]
     Active Substance: EPINEPHRINE
     Indication: VASOPLEGIA SYNDROME
     Dosage: WEANED 4, 11, AND 26 HOURS
     Route: 065
  2. VASOPRESSIN. [Suspect]
     Active Substance: VASOPRESSIN
     Indication: VASOPLEGIA SYNDROME
     Dosage: 0.04 UNITS/MIN?WEANED 4, 11, AND 26 HOURS LATER
     Route: 065
  3. NOREPINEPHRINE BITARTRATE INJECTION, USP [Suspect]
     Active Substance: NOREPINEPHRINE BITARTRATE
     Indication: VASOPLEGIA SYNDROME
     Dosage: ESCALATING DOSES. ONCE THE NOREPINEPHRINE INFUSION RATE REACHED 0.1 UG/KG/MIN ASCORBIC ACID INITIATE
     Route: 041

REACTIONS (1)
  - Drug ineffective [Recovering/Resolving]
